FAERS Safety Report 4731289-7 (Version None)
Quarter: 2005Q3

REPORT INFORMATION
  Report Type: 
  Country: None (occurrence: None)
  Receive Date: 20050802
  Receipt Date: 20050623
  Transmission Date: 20060218
  Serious: Yes (Hospitalization, Other)
  Sender: FDA-Public Use
  Company Number: 2005AP03505

PATIENT
  Age: 25318 Day
  Sex: Female

DRUGS (13)
  1. SEROQUEL [Suspect]
     Indication: SCHIZOPHRENIA
     Route: 048
     Dates: start: 20050404, end: 20050420
  2. SEROQUEL [Interacting]
     Route: 048
     Dates: start: 20050421
  3. SEROQUEL [Interacting]
     Route: 048
     Dates: start: 20050502
  4. WARFARIN [Interacting]
     Indication: THROMBOSIS PROPHYLAXIS
     Route: 048
     Dates: end: 20050506
  5. AMOBAN [Concomitant]
     Indication: SCHIZOPHRENIA
     Route: 048
     Dates: start: 20050421
  6. FUROSEMIDE [Concomitant]
     Indication: CARDIAC FAILURE CHRONIC
     Route: 048
  7. LANIRAPID [Concomitant]
     Indication: CARDIAC FAILURE CHRONIC
     Route: 048
  8. MAGNESIUM OXIDE [Concomitant]
     Indication: CONSTIPATION
     Route: 048
  9. ACARDI [Concomitant]
     Indication: CARDIAC FAILURE CHRONIC
     Route: 048
  10. KODESORUVAN [Concomitant]
     Indication: ASTHMA
     Route: 048
  11. ASPARA K [Concomitant]
     Indication: HYPOKALAEMIA
     Route: 048
  12. ALDACTONE [Concomitant]
     Indication: CARDIAC FAILURE CHRONIC
     Route: 048
  13. UNIPHYL [Concomitant]
     Indication: ASTHMA
     Route: 048

REACTIONS (3)
  - DRUG INTERACTION [None]
  - INTERNATIONAL NORMALISED RATIO ABNORMAL [None]
  - PROTHROMBIN TIME PROLONGED [None]
